FAERS Safety Report 24904018 (Version 1)
Quarter: 2025Q1

REPORT INFORMATION
  Report Type: Spontaneous
  Country: US (occurrence: US)
  Receive Date: 20250130
  Receipt Date: 20250130
  Transmission Date: 20250408
  Serious: No
  Sender: ORGANON
  Company Number: US-009507513-1309USA010405

PATIENT
  Sex: Male

DRUGS (1)
  1. PROSCAR [Suspect]
     Active Substance: FINASTERIDE
     Route: 048

REACTIONS (2)
  - Drug ineffective [Unknown]
  - Product availability issue [Unknown]
